FAERS Safety Report 7674830-7 (Version None)
Quarter: 2011Q3

REPORT INFORMATION
  Report Type: 
  Country: None (occurrence: None)
  Receive Date: 20110810
  Receipt Date: 20110801
  Transmission Date: 20111222
  Serious: Yes (Hospitalization)
  Sender: FDA-Public Use
  Company Number: DE-ROCHE-795503

PATIENT
  Age: 73 Year
  Sex: Female
  Weight: 78.8 kg

DRUGS (6)
  1. VERAPAMIL [Concomitant]
     Dosage: LAST ADMINISTRATION PRIOR TO THE EVENT WAS ON 14 JUL 2011
     Route: 048
     Dates: start: 20110101
  2. FOLIC ACID [Concomitant]
     Indication: RHEUMATOID ARTHRITIS
     Dosage: LAST ADMINISTRATION PRIOR TO THE EVENT WAS ON 13 JUL 2011
     Route: 048
     Dates: start: 19840101
  3. METHOTREXATE [Concomitant]
     Indication: RHEUMATOID ARTHRITIS
     Dosage: LAST ADMINISTRATION PRIOR TO THE EVENT WAS ON 12 JUL 2011
     Route: 048
     Dates: start: 19840101
  4. ASPIRIN [Concomitant]
     Indication: THROMBOSIS PROPHYLAXIS
     Dosage: LAST ADMINISTRATION PRIOR TO THE EVENT WAS ON 14 JUL 2011
     Route: 048
     Dates: start: 20090701
  5. TOCILIZUMAB [Suspect]
     Indication: RHEUMATOID ARTHRITIS
     Route: 042
     Dates: start: 20110406, end: 20110714
  6. PREDNISOLONE [Concomitant]
     Indication: RHEUMATOID ARTHRITIS
     Dosage: LAST ADMINISTRATION PRIOR TO THE EVENT WAS ON 14 JUL 2011
     Dates: start: 19840101

REACTIONS (1)
  - VOMITING [None]
